FAERS Safety Report 4751081-7 (Version None)
Quarter: 2005Q3

REPORT INFORMATION
  Report Type: 
  Country: None (occurrence: None)
  Receive Date: 20050822
  Receipt Date: 20050810
  Transmission Date: 20060218
  Serious: Yes (Hospitalization)
  Sender: FDA-Public Use
  Company Number: 200511620BWH

PATIENT
  Age: 46 Year
  Sex: Female
  Weight: 77 kg

DRUGS (4)
  1. DACARBAZINE [Suspect]
     Indication: METASTATIC MALIGNANT MELANOMA
     Dosage: 1000 MG/M2  INTRAVENOUS
     Route: 042
     Dates: start: 20050629, end: 20050727
  2. OXYCODONE [Concomitant]
  3. OXYCONTIN [Concomitant]
  4. COMPAZINE [Concomitant]

REACTIONS (4)
  - DEHYDRATION [None]
  - NAUSEA [None]
  - PYREXIA [None]
  - VOMITING [None]
